FAERS Safety Report 21603431 (Version 2)
Quarter: 2022Q4

REPORT INFORMATION
  Report Type: Spontaneous
  Country: US (occurrence: None)
  Receive Date: 20221116
  Receipt Date: 20221229
  Transmission Date: 20230113
  Serious: No
  Sender: FDA-Public Use
  Company Number: 2022A349654

PATIENT

DRUGS (1)
  1. SYMBICORT [Suspect]
     Active Substance: BUDESONIDE\FORMOTEROL FUMARATE DIHYDRATE
     Indication: Asthma
     Dosage: 160/4.5 MCG, 2 PUFFS, BID
     Route: 055

REACTIONS (8)
  - Asthma [Unknown]
  - Fatigue [Unknown]
  - Illness [Unknown]
  - Cough [Unknown]
  - Device malfunction [Unknown]
  - Intentional product misuse [Unknown]
  - Device use issue [Unknown]
  - Wrong technique in device usage process [Unknown]
